FAERS Safety Report 7631933-0 (Version None)
Quarter: 2011Q3

REPORT INFORMATION
  Report Type: 
  Country: None (occurrence: None)
  Receive Date: 20110725
  Receipt Date: 20110513
  Transmission Date: 20111222
  Serious: No
  Sender: FDA-Public Use
  Company Number: US-BRISTOL-MYERS SQUIBB COMPANY-15745391

PATIENT
  Age: 63 Year
  Sex: Female

DRUGS (10)
  1. COUMADIN [Suspect]
     Dosage: 1DF:8.5MG TUE AND FRI,9MG EVERY OTHER DAY.FROM 6MAY11 9MG TUE,THU,SAT,SUN.8.5MG MON,WED,FRI.
  2. LANOXIN [Concomitant]
  3. KLOR-CON M [Concomitant]
  4. LIPITOR [Concomitant]
  5. LEVOXYL [Concomitant]
  6. ALLOPURINOL [Concomitant]
  7. DIOVAN [Concomitant]
  8. LASIX [Concomitant]
  9. VITAMIN D [Concomitant]
  10. VITAMIN E [Concomitant]

REACTIONS (1)
  - PROTHROMBIN TIME RATIO ABNORMAL [None]
